FAERS Safety Report 4636646-5 (Version None)
Quarter: 2005Q2

REPORT INFORMATION
  Report Type: 
  Country: None (occurrence: None)
  Receive Date: 20050414
  Receipt Date: 20050406
  Transmission Date: 20051028
  Serious: Yes (Hospitalization)
  Sender: FDA-Public Use
  Company Number: 2005UW04518

PATIENT
  Age: 44 Year
  Sex: Female
  Weight: 108 kg

DRUGS (2)
  1. SEROQUEL [Suspect]
     Indication: PANIC ATTACK
     Dosage: 100 MG DAILY PO
     Route: 048
     Dates: start: 20030101, end: 20050101
  2. LORAZEPAM [Concomitant]

REACTIONS (2)
  - PLEURAL EFFUSION [None]
  - PULMONARY EMBOLISM [None]
